FAERS Safety Report 21934369 (Version 1)
Quarter: 2023Q1

REPORT INFORMATION
  Report Type: Report from Study
  Country: CA (occurrence: CA)
  Receive Date: 20230201
  Receipt Date: 20230201
  Transmission Date: 20230417
  Serious: Yes (Other)
  Sender: FDA-Public Use
  Company Number: CA-JNJFOC-20230132348

PATIENT
  Age: 49 Year
  Sex: Female

DRUGS (3)
  1. REMICADE [Suspect]
     Active Substance: INFLIXIMAB
     Indication: Colitis ulcerative
     Route: 042
     Dates: start: 20221026
  2. REMICADE [Suspect]
     Active Substance: INFLIXIMAB
     Route: 042
  3. REMICADE [Suspect]
     Active Substance: INFLIXIMAB
     Dosage: NEXT DUE INFUSION WOULD ON MAR-2023
     Route: 042

REACTIONS (9)
  - Infusion related reaction [Recovered/Resolved]
  - Clostridium difficile infection [Unknown]
  - Cough [Recovered/Resolved]
  - Colitis ulcerative [Not Recovered/Not Resolved]
  - Insomnia [Unknown]
  - Bone pain [Not Recovered/Not Resolved]
  - Pain in jaw [Unknown]
  - Ocular hyperaemia [Unknown]
  - Eye swelling [Unknown]

NARRATIVE: CASE EVENT DATE: 20230113
